FAERS Safety Report 4389509-7 (Version None)
Quarter: 2004Q3

REPORT INFORMATION
  Report Type: 
  Country: None (occurrence: None)
  Receive Date: 20040702
  Receipt Date: 20040622
  Transmission Date: 20050211
  Serious: Yes (Other)
  Sender: FDA-Public Use
  Company Number: GB-GLAXOSMITHKLINE-B0336463A

PATIENT
  Age: 78 Year
  Sex: Male

DRUGS (4)
  1. ZOVIRAX [Suspect]
     Indication: ANTIVIRAL PROPHYLAXIS
     Dosage: 200MG TWICE PER DAY
     Route: 065
  2. FUROSEMIDE [Concomitant]
     Route: 065
  3. ASPIRIN [Concomitant]
     Route: 065
  4. VITAMIN SUPPLEMENT [Concomitant]
     Route: 065

REACTIONS (2)
  - BONE MARROW DEPRESSION [None]
  - NEUTROPENIA [None]
